FAERS Safety Report 16188519 (Version 3)
Quarter: 2019Q2

REPORT INFORMATION
  Report Type: Spontaneous
  Country: IE (occurrence: IE)
  Receive Date: 20190412
  Receipt Date: 20190624
  Transmission Date: 20190711
  Serious: Yes (Hospitalization, Other)
  Sender: FDA-Public Use
  Company Number: PHHY2019IE030812

PATIENT
  Age: 61 Year
  Sex: Male

DRUGS (4)
  1. LAMISIL [Suspect]
     Active Substance: TERBINAFINE HYDROCHLORIDE
     Indication: ONYCHOMYCOSIS
     Dosage: 250 MG, Q24H
     Route: 048
     Dates: start: 20190112, end: 20190122
  2. ROSUVASTATIN (G) [Concomitant]
     Indication: PRODUCT USED FOR UNKNOWN INDICATION
     Dosage: 10 MG, Q24HH
     Route: 065
  3. OMEPRAZOLE PINEWOOD [Concomitant]
     Active Substance: OMEPRAZOLE
     Indication: PRODUCT USED FOR UNKNOWN INDICATION
     Dosage: 20 MG, Q24H
     Route: 065
  4. NU-SEALS [Concomitant]
     Indication: PRODUCT USED FOR UNKNOWN INDICATION
     Dosage: 75 MG, Q24H
     Route: 065

REACTIONS (4)
  - Erythema annulare [Recovered/Resolved]
  - Skin ulcer [Recovering/Resolving]
  - Erythema [Recovered/Resolved]
  - Rash [Recovered/Resolved]

NARRATIVE: CASE EVENT DATE: 20190116
